FAERS Safety Report 8675047 (Version 3)
Quarter: 2014Q1

REPORT INFORMATION
  Report Type: Spontaneous
  Country: US (occurrence: US)
  Receive Date: 20120720
  Receipt Date: 20140122
  Transmission Date: 20141002
  Serious: Yes (Hospitalization, Other)
  Sender: FDA-Public Use
  Company Number: US-B.I. PHARMACEUTICALS,INC./RIDGEFIELD-2012-BP-15745BP

PATIENT
  Age: 82 Year
  Sex: Female
  Weight: 66.68 kg

DRUGS (3)
  1. PRADAXA [Suspect]
     Indication: ATRIAL FIBRILLATION
     Dates: start: 20110407, end: 20110711
  2. PRADAXA [Suspect]
     Indication: ANTICOAGULANT THERAPY
  3. ASPIRIN [Concomitant]

REACTIONS (3)
  - Gastrointestinal haemorrhage [Unknown]
  - Ulcer [Unknown]
  - Myocardial infarction [Unknown]
